FAERS Safety Report 4736883-5 (Version None)
Quarter: 2005Q3

REPORT INFORMATION
  Report Type: 
  Country: None (occurrence: None)
  Receive Date: 20050808
  Receipt Date: 20050704
  Transmission Date: 20060218
  Serious: Yes (Hospitalization)
  Sender: FDA-Public Use
  Company Number: FR-GLAXOSMITHKLINE-B0387158A

PATIENT
  Age: 22 Year
  Sex: Male

DRUGS (2)
  1. ZOVIRAX [Suspect]
     Indication: MENINGITIS
     Dosage: 10MGK THREE TIMES PER DAY
     Route: 042
     Dates: start: 20050608, end: 20050610
  2. TOPALGIC ( FRANCE ) [Suspect]
     Indication: MENINGITIS
     Dosage: 50MG TWICE PER DAY
     Route: 048
     Dates: start: 20050608, end: 20050609

REACTIONS (6)
  - ABNORMAL BEHAVIOUR [None]
  - BALANCE DISORDER [None]
  - BRADYPHRENIA [None]
  - DISORIENTATION [None]
  - HALLUCINATION, VISUAL [None]
  - SOMNOLENCE [None]
